FAERS Safety Report 6127011-2 (Version None)
Quarter: 2009Q1

REPORT INFORMATION
  Report Type: 
  Country: None (occurrence: None)
  Receive Date: 20090320
  Receipt Date: 20090210
  Transmission Date: 20090719
  Serious: No
  Sender: FDA-Public Use
  Company Number: US-ABBOTT-09P-163-0502888-00

PATIENT
  Sex: Female
  Weight: 47.67 kg

DRUGS (1)
  1. ERYTHROMYCIN BASE [Suspect]
     Indication: SINUSITIS

REACTIONS (1)
  - HEPATIC ENZYME INCREASED [None]
